FAERS Safety Report 20947135 (Version 1)
Quarter: 2022Q2

REPORT INFORMATION
  Report Type: Spontaneous
  Country: CA (occurrence: CA)
  Receive Date: 20220610
  Receipt Date: 20220610
  Transmission Date: 20220720
  Serious: Yes (Other)
  Sender: FDA-Public Use
  Company Number: CA-ARBOR PHARMACEUTICALS, LLC-CA-2022ARB001378

PATIENT

DRUGS (7)
  1. AZILSARTAN KAMEDOXOMIL\CHLORTHALIDONE [Suspect]
     Active Substance: AZILSARTAN KAMEDOXOMIL\CHLORTHALIDONE
     Indication: Hypertension
     Dosage: UNK
     Route: 065
  2. ADEMPAS [Suspect]
     Active Substance: RIOCIGUAT
     Indication: Pulmonary hypertension
     Dosage: UNK
     Route: 065
  3. ADEMPAS [Suspect]
     Active Substance: RIOCIGUAT
     Dosage: 2 MILLIGRAM, Q8H
     Route: 065
  4. ADEMPAS [Suspect]
     Active Substance: RIOCIGUAT
     Dosage: 2.5 MILLIGRAM, Q8H
     Route: 065
  5. ADEMPAS [Suspect]
     Active Substance: RIOCIGUAT
     Dosage: 1.5 MILLIGRAM, Q8H
     Route: 065
  6. ADEMPAS [Suspect]
     Active Substance: RIOCIGUAT
     Dosage: 1 MILLIGRAM, Q8H
     Route: 048
  7. FUROSEMIDE [Suspect]
     Active Substance: FUROSEMIDE
     Indication: Oedema
     Dosage: UNK
     Route: 065

REACTIONS (12)
  - Blood pressure abnormal [Not Recovered/Not Resolved]
  - Swelling [Not Recovered/Not Resolved]
  - Asthenia [Not Recovered/Not Resolved]
  - Arthralgia [Not Recovered/Not Resolved]
  - Blood pressure diastolic decreased [Not Recovered/Not Resolved]
  - Diarrhoea [Not Recovered/Not Resolved]
  - Dehydration [Not Recovered/Not Resolved]
  - Hypertension [Not Recovered/Not Resolved]
  - Blood pressure systolic increased [Not Recovered/Not Resolved]
  - Hypotension [Not Recovered/Not Resolved]
  - Fatigue [Not Recovered/Not Resolved]
  - Product use issue [Unknown]
